FAERS Safety Report 6848050-X (Version None)
Quarter: 2010Q3

REPORT INFORMATION
  Report Type: 
  Country: None (occurrence: None)
  Receive Date: 20100716
  Receipt Date: 20100701
  Transmission Date: 20110219
  Serious: Yes (Hospitalization)
  Sender: FDA-Public Use
  Company Number: US-SHIRE-SPV1-2010-01210

PATIENT
  Sex: Male
  Weight: 83.447 kg

DRUGS (3)
  1. VYVANSE [Suspect]
     Indication: ATTENTION DEFICIT/HYPERACTIVITY DISORDER
     Dosage: 60 MG, 1X/DAY:QD
     Route: 048
     Dates: start: 20100401
  2. VYVANSE [Suspect]
     Dosage: 30 MG, 1X/DAY:QD
     Dates: start: 20100201
  3. DIAMOX                             /00016901/ [Suspect]
     Indication: PROPHYLAXIS
     Dosage: .5 DF, 2X/DAY:BID
     Route: 048
     Dates: start: 20100625, end: 20100630

REACTIONS (2)
  - MOUNTAIN SICKNESS ACUTE [None]
  - PULMONARY OEDEMA [None]
